FAERS Safety Report 10440562 (Version 1)
Quarter: 2014Q3

REPORT INFORMATION
  Report Type: Spontaneous
  Country: US (occurrence: None)
  Receive Date: 20140908
  Receipt Date: 20140908
  Transmission Date: 20150326
  Serious: No
  Sender: FDA-Public Use
  Company Number: None

PATIENT
  Age: 49 Year
  Weight: 104.33 kg

DRUGS (2)
  1. RANITIDINE [Suspect]
     Active Substance: RANITIDINE\RANITIDINE HYDROCHLORIDE
     Indication: GASTROOESOPHAGEAL REFLUX DISEASE
     Dosage: 1 CAPSULE TWICE DAILY TAKEN BY MOUTH
     Route: 048
     Dates: start: 20140723, end: 20140813
  2. RANITIDINE [Suspect]
     Active Substance: RANITIDINE\RANITIDINE HYDROCHLORIDE
     Indication: MASTOCYTOSIS
     Dosage: 1 CAPSULE TWICE DAILY TAKEN BY MOUTH
     Route: 048
     Dates: start: 20140723, end: 20140813

REACTIONS (3)
  - Product measured potency issue [None]
  - Product quality issue [None]
  - Drug ineffective [None]

NARRATIVE: CASE EVENT DATE: 20140723
